FAERS Safety Report 6251771-3 (Version None)
Quarter: 2009Q2

REPORT INFORMATION
  Report Type: 
  Country: None (occurrence: None)
  Receive Date: 20090630
  Receipt Date: 20090619
  Transmission Date: 20091009
  Serious: Yes (Hospitalization, Other)
  Sender: FDA-Public Use
  Company Number: PHHY2009BR24776

PATIENT
  Age: 55 Year
  Sex: Male
  Weight: 90 kg

DRUGS (13)
  1. TRILEPTAL [Suspect]
     Indication: CONVULSION
     Dosage: 1 DF, BID
     Dates: start: 20070101
  2. TRILEPTAL [Suspect]
     Dosage: UNK
     Dates: start: 20090501
  3. TEGRETOL [Suspect]
     Indication: CONVULSION
     Dosage: 1 DF, BID
     Dates: start: 20090605
  4. DEPAKOTE [Concomitant]
     Indication: CONVULSION
     Dosage: 1 DF, TID
  5. HIDANTAL [Concomitant]
     Indication: CONVULSION
     Dosage: 2 TABLETS IN THE MORNING, 1 TABLET IN THE AFTERNOON AND 2 TABLETS AT NIGHT,
     Dates: start: 20080601
  6. GARDENAL [Concomitant]
     Indication: CONVULSION
     Dosage: 2 TABLETS AT NIGHT
     Dates: start: 20080601
  7. ANCORON [Concomitant]
     Indication: ARRHYTHMIA
     Dosage: 1 TABLET AT NIGHT
     Dates: start: 20080401
  8. VYTORIN [Concomitant]
     Indication: BLOOD CHOLESTEROL
     Dosage: 1 TABLET AT NIGHT
     Dates: start: 20080401
  9. LAMICTAL [Concomitant]
     Indication: CONVULSION
     Dosage: UNK
     Dates: start: 20080501
  10. CHEMOTHERAPEUTICS NOS [Concomitant]
     Dosage: UNK
     Dates: start: 20080901, end: 20090601
  11. AVASTIN [Concomitant]
     Dosage: UNK
     Dates: start: 20080901
  12. THALIDOMIDE [Concomitant]
     Dosage: 1 DF, BID
  13. RADIOTHERAPY [Concomitant]

REACTIONS (7)
  - BLOOD SODIUM DECREASED [None]
  - CONTINUOUS POSITIVE AIRWAY PRESSURE [None]
  - CONVULSION [None]
  - NECROSIS [None]
  - OEDEMA PERIPHERAL [None]
  - SLEEP APNOEA SYNDROME [None]
  - SLEEP STUDY ABNORMAL [None]
